FAERS Safety Report 7391050-4 (Version None)
Quarter: 2011Q1

REPORT INFORMATION
  Report Type: 
  Country: None (occurrence: None)
  Receive Date: 20110324
  Receipt Date: 20110314
  Transmission Date: 20110831
  Serious: Yes (Hospitalization)
  Sender: FDA-Public Use
  Company Number: 2011SP000809

PATIENT
  Age: 75 Year
  Sex: Female
  Weight: 69.4 kg

DRUGS (4)
  1. BROVANA [Suspect]
     Indication: CHRONIC OBSTRUCTIVE PULMONARY DISEASE
     Dosage: 15 UG/2ML; BID; INHALATION
     Route: 055
  2. VITAMINS [Concomitant]
  3. SYNTHROID [Concomitant]
  4. ALPRAZOLAM [Concomitant]

REACTIONS (3)
  - PNEUMONIA [None]
  - DRUG ADMINISTRATION ERROR [None]
  - ACCIDENTAL OVERDOSE [None]
